FAERS Safety Report 17072724 (Version 1)
Quarter: 2019Q4

REPORT INFORMATION
  Report Type: Spontaneous
  Country: CA (occurrence: CA)
  Receive Date: 20191125
  Receipt Date: 20191125
  Transmission Date: 20200122
  Serious: Yes (Hospitalization, Other)
  Sender: FDA-Public Use
  Company Number: CA-JNJFOC-20191125221

PATIENT
  Age: 20 Year
  Sex: Female

DRUGS (2)
  1. DURAGESIC [Suspect]
     Active Substance: FENTANYL
     Indication: PRODUCT USED FOR UNKNOWN INDICATION
  2. METHAMPHETAMINE [Suspect]
     Active Substance: METHAMPHETAMINE
     Indication: PRODUCT USED FOR UNKNOWN INDICATION
     Route: 065

REACTIONS (8)
  - Blood pressure decreased [Unknown]
  - Respiratory rate decreased [Unknown]
  - Incorrect route of product administration [Unknown]
  - Loss of consciousness [Unknown]
  - Intentional overdose [Unknown]
  - Off label use [Unknown]
  - Heart rate increased [Unknown]
  - Staphylococcal infection [Unknown]
